FAERS Safety Report 18586759 (Version 1)
Quarter: 2020Q4

REPORT INFORMATION
  Report Type: Spontaneous
  Country: US (occurrence: US)
  Receive Date: 20201207
  Receipt Date: 20201207
  Transmission Date: 20210114
  Serious: Yes (Hospitalization)
  Sender: FDA-Public Use
  Company Number: US-ROCHE-2727754

PATIENT
  Age: 70 Year
  Sex: Female

DRUGS (7)
  1. VENTOLIN [Concomitant]
     Active Substance: ALBUTEROL SULFATE
  2. BREO ELLIPTA [Concomitant]
     Active Substance: FLUTICASONE FUROATE\VILANTEROL TRIFENATATE
  3. CALCIUM [Concomitant]
     Active Substance: CALCIUM
  4. ALENDRONATE [Concomitant]
     Active Substance: ALENDRONATE SODIUM
  5. PREDNISONE. [Concomitant]
     Active Substance: PREDNISONE
  6. ESBRIET [Suspect]
     Active Substance: PIRFENIDONE
     Indication: IDIOPATHIC PULMONARY FIBROSIS
     Route: 048
     Dates: start: 20190719
  7. LOVASTATIN. [Concomitant]
     Active Substance: LOVASTATIN

REACTIONS (1)
  - Pyrexia [Unknown]

NARRATIVE: CASE EVENT DATE: 20201106
